FAERS Safety Report 9249115 (Version 3)
Quarter: 2013Q2

REPORT INFORMATION
  Report Type: Spontaneous
  Country: US (occurrence: US)
  Receive Date: 20130423
  Receipt Date: 20130521
  Transmission Date: 20140414
  Serious: Yes (Death, Hospitalization, Other)
  Sender: FDA-Public Use
  Company Number: US-ALEXION PHARMACEUTICALS INC.-A201300828

PATIENT
  Sex: Male
  Weight: 95.25 kg

DRUGS (13)
  1. SOLIRIS 300MG [Suspect]
     Indication: HAEMOLYTIC URAEMIC SYNDROME
     Dosage: UNK
     Route: 042
     Dates: start: 20120522, end: 20120731
  2. OXYCODONE HYDROCHLORIDE [Concomitant]
     Dosage: 5 MG, 1-2 Q4H
     Route: 048
  3. FUROSEMIDE [Concomitant]
     Dosage: 40 MG, QD
     Route: 048
  4. METOPROLOL TARTRATE [Concomitant]
     Dosage: 25 MG, BID
     Route: 048
  5. LISINOPRIL [Concomitant]
     Dosage: 2.5 MG, QD
     Route: 048
  6. IRON [Concomitant]
     Dosage: 325 MG, 1 BETWEEN MEALS QD
     Route: 048
  7. CITALOPRAM HYDROBROMIDE [Concomitant]
     Dosage: 40 MG, QD
     Route: 048
  8. RANITIDINE HYDROCHLORIDE [Concomitant]
     Dosage: 150 MG, BID
     Route: 048
  9. ASPIRIN [Concomitant]
     Dosage: 81 MG, QD
     Route: 048
  10. NIASPAN [Concomitant]
     Dosage: 1000 MG, QD HS
     Route: 048
  11. HYDROCODONE BITARTRATE AND ACETAMINOPHEN [Concomitant]
     Indication: PAIN
     Dosage: 5 MG-325 MG, Q6H PRN
     Route: 048
  12. TEMAZEPAM [Concomitant]
     Dosage: 30 MG, QD HS PRN
     Route: 048
  13. CRESTOR [Concomitant]
     Dosage: 20 MG, QD
     Route: 048

REACTIONS (4)
  - Non-small cell lung cancer [Fatal]
  - Idiopathic thrombocytopenic purpura [Unknown]
  - Pneumonia [Unknown]
  - Haemolytic anaemia [Unknown]
